FAERS Safety Report 15474380 (Version 1)
Quarter: 2018Q4

REPORT INFORMATION
  Report Type: Spontaneous
  Country: US (occurrence: US)
  Receive Date: 20181008
  Receipt Date: 20181008
  Transmission Date: 20190205
  Serious: Yes (Other)
  Sender: FDA-Public Use
  Company Number: US-BAYER-2018-181595

PATIENT
  Age: 85 Year
  Sex: Female

DRUGS (3)
  1. ALEVE [Suspect]
     Active Substance: NAPROXEN SODIUM
     Indication: PAIN
     Dosage: UNK
  2. MIRABEGRON [Interacting]
     Active Substance: MIRABEGRON
     Indication: POLLAKIURIA
     Dosage: 25 MG, QD
     Route: 048
     Dates: start: 20180814, end: 20180909
  3. BAYER ASPIRIN [Interacting]
     Active Substance: ASPIRIN
     Indication: PAIN
     Dosage: UNK

REACTIONS (7)
  - Pollakiuria [Unknown]
  - Drug interaction [Unknown]
  - Urinary retention [Unknown]
  - Frequent bowel movements [Unknown]
  - Urinary tract infection [Unknown]
  - Constipation [Unknown]
  - Pollakiuria [Unknown]

NARRATIVE: CASE EVENT DATE: 201808
